FAERS Safety Report 15247553 (Version 1)
Quarter: 2018Q3

REPORT INFORMATION
  Report Type: Report from Study
  Country: CO (occurrence: CO)
  Receive Date: 20180807
  Receipt Date: 20180807
  Transmission Date: 20181010
  Serious: Yes (Hospitalization, Other)
  Sender: FDA-Public Use
  Company Number: CO-UCBSA-2018034562

PATIENT
  Age: 22 Year
  Sex: Female
  Weight: 61 kg

DRUGS (2)
  1. LACOSAMIDE. [Suspect]
     Active Substance: LACOSAMIDE
     Indication: EPILEPSY
     Dosage: 200 MG, 3X/DAY (TID)
     Route: 048
     Dates: start: 20170828, end: 20180618
  2. LACOSAMIDE. [Suspect]
     Active Substance: LACOSAMIDE
     Dosage: 200 MG, 3X/DAY (TID)
     Route: 048
     Dates: start: 20180630

REACTIONS (3)
  - Drug dose omission [Unknown]
  - Off label use [Unknown]
  - Seizure [Recovered/Resolved]

NARRATIVE: CASE EVENT DATE: 20170828
